FAERS Safety Report 24728052 (Version 1)
Quarter: 2024Q4

REPORT INFORMATION
  Report Type: Spontaneous
  Country: GB (occurrence: GB)
  Receive Date: 20241212
  Receipt Date: 20241212
  Transmission Date: 20250115
  Serious: Yes (Other)
  Sender: TEVA
  Company Number: None

PATIENT
  Age: 76 Year
  Sex: Male
  Weight: 78 kg

DRUGS (1)
  1. LEVOFLOXACIN [Suspect]
     Active Substance: LEVOFLOXACIN
     Indication: Orchitis
     Dosage: 500MG, 500MG OD FOR 10 DAYS
     Route: 065
     Dates: start: 20241118

REACTIONS (1)
  - Tendon injury [Recovering/Resolving]
